FAERS Safety Report 24401299 (Version 1)
Quarter: 2024Q4

REPORT INFORMATION
  Report Type: Report from Study
  Country: US (occurrence: US)
  Receive Date: 20241007
  Receipt Date: 20241007
  Transmission Date: 20250114
  Serious: Yes (Hospitalization, Other)
  Sender: ALEXION PHARMACEUTICALS
  Company Number: US-AstraZeneca-CH-00715293A

PATIENT
  Weight: 46.719 kg

DRUGS (12)
  1. CAPIVASERTIB [Suspect]
     Active Substance: CAPIVASERTIB
     Indication: Breast cancer female
  2. CAPIVASERTIB [Suspect]
     Active Substance: CAPIVASERTIB
  3. CAPIVASERTIB [Suspect]
     Active Substance: CAPIVASERTIB
  4. CAPIVASERTIB [Suspect]
     Active Substance: CAPIVASERTIB
  5. FASLODEX [Concomitant]
     Active Substance: FULVESTRANT
     Route: 065
  6. FASLODEX [Concomitant]
     Active Substance: FULVESTRANT
  7. FASLODEX [Concomitant]
     Active Substance: FULVESTRANT
     Route: 065
  8. FASLODEX [Concomitant]
     Active Substance: FULVESTRANT
  9. XGEVA [Concomitant]
     Active Substance: DENOSUMAB
     Route: 065
  10. XGEVA [Concomitant]
     Active Substance: DENOSUMAB
  11. XGEVA [Concomitant]
     Active Substance: DENOSUMAB
     Route: 065
  12. XGEVA [Concomitant]
     Active Substance: DENOSUMAB

REACTIONS (2)
  - Cerebrovascular accident [Unknown]
  - Bacterial infection [Unknown]
